FAERS Safety Report 4552972-2 (Version None)
Quarter: 2005Q1

REPORT INFORMATION
  Report Type: 
  Country: None (occurrence: None)
  Receive Date: 20050113
  Receipt Date: 20050104
  Transmission Date: 20050727
  Serious: Yes (Death)
  Sender: FDA-Public Use
  Company Number: 2005AC00023

PATIENT
  Age: 42 Year
  Sex: Male

DRUGS (8)
  1. DIPRIVAN [Suspect]
     Indication: INTRACRANIAL PRESSURE INCREASED
     Dosage: 100 UG/KG /MIN IV
     Route: 042
  2. DIPRIVAN [Suspect]
     Indication: SEDATION
     Dosage: 100 UG/KG /MIN IV
     Route: 042
  3. DIPRIVAN [Suspect]
     Indication: INTRACRANIAL PRESSURE INCREASED
     Dosage: 143 UG/KG /MIN IV
     Route: 042
  4. DIPRIVAN [Suspect]
     Indication: SEDATION
     Dosage: 143 UG/KG /MIN IV
     Route: 042
  5. ALTEPLASE [Concomitant]
  6. SODIUM CHLORIDE [Concomitant]
  7. ATRACURONIUM [Concomitant]
  8. FENTANYL [Concomitant]

REACTIONS (17)
  - ANURIA [None]
  - BLOOD CALCIUM DECREASED [None]
  - BLOOD PHOSPHORUS INCREASED [None]
  - BLOOD POTASSIUM DECREASED [None]
  - BUNDLE BRANCH BLOCK [None]
  - CARDIAC ARREST [None]
  - CARDIAC FAILURE [None]
  - CARDIOMYOPATHY [None]
  - DRUG LEVEL INCREASED [None]
  - ELECTROCARDIOGRAM ST-T CHANGE [None]
  - GLASGOW COMA SCALE ABNORMAL [None]
  - HAEMOGLOBINURIA [None]
  - HYPOTENSION [None]
  - METABOLIC ACIDOSIS [None]
  - PROPOFOL INFUSION SYNDROME [None]
  - RENAL FAILURE ACUTE [None]
  - RHABDOMYOLYSIS [None]
